FAERS Safety Report 6117137-1 (Version None)
Quarter: 2009Q1

REPORT INFORMATION
  Report Type: 
  Country: None (occurrence: None)
  Receive Date: 20090314
  Receipt Date: 20090107
  Transmission Date: 20090719
  Serious: No
  Sender: FDA-Public Use
  Company Number: US-ABBOTT-09P-163-0496436-00

PATIENT
  Sex: Female
  Weight: 78.088 kg

DRUGS (7)
  1. HUMIRA [Suspect]
     Indication: CROHN'S DISEASE
     Dosage: 160 MG 1ST DOSE
     Dates: start: 20090102, end: 20090102
  2. HUMIRA [Suspect]
  3. CELEBREX [Concomitant]
     Indication: DRUG USE FOR UNKNOWN INDICATION
  4. LYRICA [Concomitant]
     Indication: DRUG USE FOR UNKNOWN INDICATION
  5. ASPIRIN [Concomitant]
     Indication: DRUG USE FOR UNKNOWN INDICATION
  6. IMURAN [Concomitant]
     Indication: DRUG USE FOR UNKNOWN INDICATION
  7. PROCRIT [Concomitant]
     Indication: DRUG USE FOR UNKNOWN INDICATION
     Dates: start: 20090102

REACTIONS (2)
  - OEDEMA PERIPHERAL [None]
  - PITTING OEDEMA [None]
